FAERS Safety Report 6402485-8 (Version None)
Quarter: 2009Q4

REPORT INFORMATION
  Report Type: 
  Country: None (occurrence: None)
  Receive Date: 20091015
  Receipt Date: 20091008
  Transmission Date: 20100525
  Serious: Yes (Other)
  Sender: FDA-Public Use
  Company Number: BR-ABBOTT-09P-020-0601687-00

PATIENT
  Sex: Female
  Weight: 58 kg

DRUGS (8)
  1. HUMIRA [Suspect]
     Indication: RHEUMATOID ARTHRITIS
     Route: 058
  2. METHOTREXATE [Concomitant]
     Indication: RHEUMATOID ARTHRITIS
     Route: 048
  3. ARAVA [Concomitant]
     Indication: RHEUMATOID ARTHRITIS
     Route: 048
  4. ARADOIS [Concomitant]
     Indication: BLOOD PRESSURE
     Dosage: 50MG/12.5MG
     Route: 048
  5. OMEPRAZOLE [Concomitant]
     Indication: GASTRIC DISORDER
     Route: 048
  6. METICORTEN [Concomitant]
     Indication: RHEUMATOID ARTHRITIS
     Route: 048
  7. DICLOFENAC [Concomitant]
     Indication: RHEUMATOID ARTHRITIS
     Route: 048
  8. CALCIUM [Concomitant]
     Indication: OSTEOPOROSIS
     Route: 048
     Dates: end: 20090801

REACTIONS (1)
  - FOOT FRACTURE [None]
